FAERS Safety Report 5335092-9 (Version None)
Quarter: 2007Q2

REPORT INFORMATION
  Report Type: 
  Country: None (occurrence: None)
  Receive Date: 20070525
  Receipt Date: 20040803
  Transmission Date: 20071010
  Serious: Yes (Hospitalization)
  Sender: FDA-Public Use
  Company Number: FR-BOEHRINGER INGELHEIM PHARMACEUTICALS, INC.-2004-BP-06484BP

PATIENT
  Sex: Male
  Weight: 96.62 kg

DRUGS (4)
  1. VIRAMUNE [Suspect]
     Indication: HIV INFECTION
     Route: 048
     Dates: start: 20040524, end: 20040618
  2. MACROLIN [Suspect]
     Indication: HIV INFECTION
     Dosage: 4.5 MIU BID
     Route: 058
     Dates: start: 20040524, end: 20040528
  3. COMBIVIR [Concomitant]
     Indication: HIV INFECTION
     Route: 048
     Dates: end: 20040618
  4. BACTRIM DS [Concomitant]
     Dates: end: 20040618

REACTIONS (1)
  - PANCREATITIS ACUTE [None]
